FAERS Safety Report 16829015 (Version 1)
Quarter: 2019Q3

REPORT INFORMATION
  Report Type: Spontaneous
  Country: US (occurrence: US)
  Receive Date: 20190919
  Receipt Date: 20190919
  Transmission Date: 20191005
  Serious: Yes (Hospitalization, Other)
  Sender: FDA-Public Use
  Company Number: US-SUNOVION-2019SUN003824

PATIENT
  Age: 57 Year
  Sex: Female
  Weight: 18.14 kg

DRUGS (3)
  1. LATUDA [Suspect]
     Active Substance: LURASIDONE HYDROCHLORIDE
     Dosage: 80 MG,1/2 TAB, QD = 40MG
     Route: 048
     Dates: start: 201507, end: 201508
  2. LATUDA [Suspect]
     Active Substance: LURASIDONE HYDROCHLORIDE
     Indication: PRODUCT USED FOR UNKNOWN INDICATION
     Dosage: 80 MG, QD
     Route: 048
     Dates: start: 201506, end: 201507
  3. LATUDA [Suspect]
     Active Substance: LURASIDONE HYDROCHLORIDE
     Dosage: 80 MG,1/2 TAB, QOD = 40MG
     Route: 048
     Dates: start: 201908, end: 201908

REACTIONS (16)
  - Haemorrhage [Not Recovered/Not Resolved]
  - Urine abnormality [Not Recovered/Not Resolved]
  - Wrong technique in product usage process [Unknown]
  - Pruritus [Not Recovered/Not Resolved]
  - Scar [Not Recovered/Not Resolved]
  - Chromaturia [Not Recovered/Not Resolved]
  - White blood cell count increased [Not Recovered/Not Resolved]
  - Inflammation [Not Recovered/Not Resolved]
  - Hair growth abnormal [Not Recovered/Not Resolved]
  - Mass [Not Recovered/Not Resolved]
  - Skin discolouration [Not Recovered/Not Resolved]
  - Product dose omission [Unknown]
  - Mental disorder [Unknown]
  - Blood urine present [Not Recovered/Not Resolved]
  - Mucosal disorder [Not Recovered/Not Resolved]
  - Swelling [Not Recovered/Not Resolved]

NARRATIVE: CASE EVENT DATE: 201506
